FAERS Safety Report 5027580-X (Version None)
Quarter: 2006Q2

REPORT INFORMATION
  Report Type: 
  Country: None (occurrence: None)
  Receive Date: 20060616
  Receipt Date: 20060601
  Transmission Date: 20061013
  Serious: Yes (Hospitalization, Other)
  Sender: FDA-Public Use
  Company Number: US-AMGEN-STX181670

PATIENT
  Sex: Male

DRUGS (1)
  1. ENBREL [Suspect]
     Indication: RHEUMATOID ARTHRITIS
     Route: 058
     Dates: start: 20021112

REACTIONS (5)
  - BLOOD CREATINE INCREASED [None]
  - HIP ARTHROPLASTY [None]
  - INFLUENZA [None]
  - POSTOPERATIVE WOUND INFECTION [None]
  - ULCER [None]
